FAERS Safety Report 5948468-3 (Version None)
Quarter: 2008Q4

REPORT INFORMATION
  Report Type: 
  Country: None (occurrence: None)
  Receive Date: 20081111
  Receipt Date: 20081031
  Transmission Date: 20090506
  Serious: Yes (Death, Congenital Anomaly)
  Sender: FDA-Public Use
  Company Number: A0748062A

PATIENT
  Sex: Male

DRUGS (1)
  1. PAXIL CR [Suspect]
     Indication: DEPRESSION
     Dates: start: 20050101, end: 20060101

REACTIONS (12)
  - ADRENAL INSUFFICIENCY [None]
  - DEATH [None]
  - DISSEMINATED INTRAVASCULAR COAGULATION [None]
  - DRUG EXPOSURE DURING PREGNANCY [None]
  - GASTROSCHISIS [None]
  - NECROTISING COLITIS [None]
  - NEONATAL ASPIRATION [None]
  - PERSISTENT FOETAL CIRCULATION [None]
  - PULMONARY HYPERTENSION [None]
  - RESPIRATORY FAILURE [None]
  - SEPSIS [None]
  - THROMBOCYTOPENIA [None]
